FAERS Safety Report 5955178-5 (Version None)
Quarter: 2008Q4

REPORT INFORMATION
  Report Type: 
  Country: None (occurrence: None)
  Receive Date: 20081112
  Receipt Date: 20081030
  Transmission Date: 20090506
  Serious: Yes (Other)
  Sender: FDA-Public Use
  Company Number: 2008SP022162

PATIENT
  Age: 72 Year
  Sex: Male
  Weight: 59 kg

DRUGS (1)
  1. CLARITIN-D [Suspect]
     Indication: HYPERSENSITIVITY
     Dosage: 1 DF
     Dates: start: 20081001, end: 20081001

REACTIONS (4)
  - DYSPNOEA [None]
  - HYPERTENSION [None]
  - MALAISE [None]
  - PNEUMONIA [None]
